FAERS Safety Report 25566332 (Version 1)
Quarter: 2025Q3

REPORT INFORMATION
  Report Type: Spontaneous
  Country: US (occurrence: US)
  Receive Date: 20250716
  Receipt Date: 20250716
  Transmission Date: 20251021
  Serious: Yes (Other)
  Sender: PFIZER
  Company Number: US-PFIZER INC-PV202500083811

PATIENT
  Sex: Female

DRUGS (4)
  1. IBRANCE [Suspect]
     Active Substance: PALBOCICLIB
  2. ITOVEBI [Concomitant]
     Active Substance: INAVOLISIB
  3. ITOVEBI [Concomitant]
     Active Substance: INAVOLISIB
  4. FASLODEX [Concomitant]
     Active Substance: FULVESTRANT

REACTIONS (1)
  - Hyperglycaemia [Not Recovered/Not Resolved]
